FAERS Safety Report 9228164 (Version 2)
Quarter: 2013Q2

REPORT INFORMATION
  Report Type: Report from Study
  Country: CA (occurrence: CA)
  Receive Date: 20130412
  Receipt Date: 20130417
  Transmission Date: 20140414
  Serious: Yes (Hospitalization, Other)
  Sender: FDA-Public Use
  Company Number: CA-JNJFOC-20130203002

PATIENT
  Age: 53 Year
  Sex: Male
  Weight: 95.4 kg

DRUGS (11)
  1. REMICADE [Suspect]
     Indication: COLITIS ULCERATIVE
     Dosage: THE PATIENT HAD RECEIVED 46 INFUSIONS TO DATE.
     Route: 042
     Dates: start: 20100628
  2. GABAPENTIN [Concomitant]
     Dosage: DOSE: 400.0 (UNIT UNSPECIFIED)
     Route: 065
  3. OXYCONTIN [Concomitant]
     Route: 065
  4. OXYCOCET [Concomitant]
     Route: 065
  5. CELEXA [Concomitant]
     Route: 065
  6. PARIET [Concomitant]
     Route: 065
  7. ENTOCORT [Concomitant]
     Route: 065
  8. HYDROMORPHONE [Concomitant]
     Dosage: INTERVAL: EVERY 4 TO 6 HOURS
     Route: 065
  9. NAPROXEN [Concomitant]
     Route: 065
  10. VALIUM [Concomitant]
     Dosage: DOSE: 10 (UNITS UNSPECIFIED)
     Route: 065
  11. BACLOFEN [Concomitant]
     Dosage: DOSE: 10 (UNIT UNPECIFIED)
     Route: 065

REACTIONS (5)
  - Spinal operation [Not Recovered/Not Resolved]
  - Gait disturbance [Not Recovered/Not Resolved]
  - Nausea [Not Recovered/Not Resolved]
  - Vomiting [Not Recovered/Not Resolved]
  - Pain in extremity [Not Recovered/Not Resolved]
